FAERS Safety Report 13515106 (Version 1)
Quarter: 2017Q2

REPORT INFORMATION
  Report Type: Spontaneous
  Country: BR (occurrence: BR)
  Receive Date: 20170504
  Receipt Date: 20170504
  Transmission Date: 20170830
  Serious: Yes (Hospitalization, Other)
  Sender: FDA-Public Use
  Company Number: BR-GLAXOSMITHKLINE-B0818935A

PATIENT
  Age: 35 Year
  Sex: Male

DRUGS (6)
  1. AMPHOTERICIN B. [Concomitant]
     Active Substance: AMPHOTERICIN B
     Route: 065
  2. TRIMETHOPRIM AND SULFAMETHOXAZOLE [Concomitant]
     Active Substance: SULFAMETHOXAZOLE\TRIMETHOPRIM
     Indication: PROPHYLAXIS
  3. EFAVIRENZ [Suspect]
     Active Substance: EFAVIRENZ
     Route: 065
  4. LAMIVUDINE. [Suspect]
     Active Substance: LAMIVUDINE
     Indication: PRODUCT USED FOR UNKNOWN INDICATION
     Route: 065
  5. ZIDOVUDINE. [Suspect]
     Active Substance: ZIDOVUDINE
     Indication: PRODUCT USED FOR UNKNOWN INDICATION
     Route: 065
  6. ITRACONAZOLE. [Concomitant]
     Active Substance: ITRACONAZOLE
     Route: 065

REACTIONS (17)
  - Irritability [Unknown]
  - Dizziness [Unknown]
  - Syncope [Unknown]
  - Confusional state [Unknown]
  - Speech disorder [Unknown]
  - Central nervous system lesion [Recovering/Resolving]
  - Immune reconstitution inflammatory syndrome [Recovering/Resolving]
  - Phonophobia [Unknown]
  - Coordination abnormal [Unknown]
  - Hyperreflexia [Unknown]
  - Dysarthria [Unknown]
  - Brain oedema [Unknown]
  - Aggression [Unknown]
  - Psychomotor hyperactivity [Unknown]
  - Paracoccidioides infection [Recovering/Resolving]
  - Agitation [Unknown]
  - Encephalitis [Recovering/Resolving]

NARRATIVE: CASE EVENT DATE: 201112
